FAERS Safety Report 5345178-0 (Version None)
Quarter: 2007Q2

REPORT INFORMATION
  Report Type: 
  Country: None (occurrence: None)
  Receive Date: 20070601
  Receipt Date: 20070524
  Transmission Date: 20071010
  Serious: Yes (Hospitalization)
  Sender: FDA-Public Use
  Company Number: 2007BI010242

PATIENT
  Age: 41 Year
  Sex: Female

DRUGS (9)
  1. AVONEX [Suspect]
     Indication: MULTIPLE SCLEROSIS
     Dosage: 30 UG; QW; IM
     Route: 030
     Dates: start: 20040730
  2. ALBUTEROL [Concomitant]
  3. ADVAIR DISKUS 100/50 [Concomitant]
  4. ATROVENT [Concomitant]
  5. PAXIL [Concomitant]
  6. NEURONTIN [Concomitant]
  7. DETROL [Concomitant]
  8. BACLOFEN [Concomitant]
  9. PROVIGIL [Concomitant]

REACTIONS (5)
  - BALANCE DISORDER [None]
  - CEREBRAL DISORDER [None]
  - CONDITION AGGRAVATED [None]
  - FALL [None]
  - LOSS OF CONSCIOUSNESS [None]
